FAERS Safety Report 23954128 (Version 2)
Quarter: 2024Q3

REPORT INFORMATION
  Report Type: Spontaneous
  Country: US (occurrence: US)
  Receive Date: 20240609
  Receipt Date: 20240709
  Transmission Date: 20241016
  Serious: No
  Sender: BAUSCH AND LOMB
  Company Number: US-BAUSCHBL-2024BNL028118

PATIENT
  Age: 69 Year
  Sex: Male

DRUGS (5)
  1. DORZOLAMIDE HYDROCHLORIDE AND TIMOLOL MALEATE OPHTHALMIC SOLUTION [Suspect]
     Active Substance: DORZOLAMIDE HYDROCHLORIDE\TIMOLOL MALEATE
     Indication: Glaucoma
     Dosage: IT^S BEEN YEAR^S
     Route: 047
  2. LATANOPROST [Suspect]
     Active Substance: LATANOPROST
     Indication: Glaucoma
     Dosage: IT^S BEEN YEAR^S
     Route: 065
  3. CARBOXYMETHYLCELLULOSE [Suspect]
     Active Substance: CARBOXYMETHYLCELLULOSE
     Indication: Seasonal allergy
     Route: 065
  4. SALINE [Suspect]
     Active Substance: SODIUM CHLORIDE
     Indication: Seasonal allergy
     Route: 065
  5. BERBERINE [Concomitant]
     Active Substance: BERBERINE
     Indication: Product used for unknown indication
     Route: 065

REACTIONS (1)
  - Vision blurred [Not Recovered/Not Resolved]
